FAERS Safety Report 23064875 (Version 1)
Quarter: 2023Q4

REPORT INFORMATION
  Report Type: Spontaneous
  Country: US (occurrence: None)
  Receive Date: 20231013
  Receipt Date: 20231013
  Transmission Date: 20240110
  Serious: Yes (Death)
  Sender: FDA-Public Use
  Company Number: 2023A232809

PATIENT

DRUGS (15)
  1. FULVESTRANT [Suspect]
     Active Substance: FULVESTRANT
     Route: 030
     Dates: start: 20200814, end: 20200918
  2. FULVESTRANT [Suspect]
     Active Substance: FULVESTRANT
     Route: 030
     Dates: start: 20211102, end: 20211214
  3. OLAPARIB [Suspect]
     Active Substance: OLAPARIB
     Route: 048
     Dates: start: 20200424, end: 20200724
  4. PACLITAXEL [Concomitant]
     Active Substance: PACLITAXEL
     Dates: start: 20201221, end: 20210414
  5. LETROZOLE [Concomitant]
     Active Substance: LETROZOLE
     Dates: start: 20190524, end: 20200724
  6. PALBO [Concomitant]
     Dates: start: 20190603, end: 20190624
  7. PALBO [Concomitant]
     Dates: start: 20190701, end: 20190722
  8. PALBO [Concomitant]
     Dates: start: 20190731, end: 20190821
  9. PALBO [Concomitant]
     Dates: start: 20200104, end: 20200124
  10. PALBO [Concomitant]
     Dates: start: 20200131, end: 20200221
  11. PALBO [Concomitant]
     Dates: start: 20200404, end: 20200425
  12. PALBO [Concomitant]
     Dates: start: 20200502, end: 20200523
  13. PALBO [Concomitant]
     Dates: start: 20200604, end: 20200625
  14. PALBO [Concomitant]
     Dates: start: 20200712, end: 20200802
  15. PIQRAY [Concomitant]
     Active Substance: ALPELISIB
     Dates: start: 20211103, end: 20211218

REACTIONS (1)
  - Respiratory failure [Fatal]

NARRATIVE: CASE EVENT DATE: 20220122
